FAERS Safety Report 5819369-6 (Version None)
Quarter: 2008Q3

REPORT INFORMATION
  Report Type: 
  Country: None (occurrence: None)
  Receive Date: 20080723
  Receipt Date: 20080714
  Transmission Date: 20090109
  Serious: Yes (Other)
  Sender: FDA-Public Use
  Company Number: US-BAYER-200810794BCC

PATIENT
  Age: 67 Year
  Sex: Female
  Weight: 101 kg

DRUGS (8)
  1. ASPIRIN [Suspect]
     Indication: CARDIOVASCULAR EVENT PROPHYLAXIS
     Dosage: TOTAL DAILY DOSE: 325 MG  UNIT DOSE: 325 MG
     Route: 048
     Dates: start: 20050101
  2. ONE A DAY WOMENS [Suspect]
     Indication: VITAMIN SUPPLEMENTATION
     Route: 048
     Dates: start: 20080101, end: 20080101
  3. ONE A DAY WOMENS [Suspect]
     Route: 048
     Dates: end: 20080101
  4. CAPTOPRIL [Concomitant]
  5. AMLODIPINE BESYLATE [Concomitant]
  6. FUROSEMIDE [Concomitant]
  7. INSPRA [Concomitant]
  8. COREG CR [Concomitant]

REACTIONS (2)
  - BREAST CANCER RECURRENT [None]
  - CONSTIPATION [None]
